FAERS Safety Report 8157826-0 (Version None)
Quarter: 2012Q1

REPORT INFORMATION
  Report Type: 
  Country: None (occurrence: None)
  Receive Date: 20120222
  Receipt Date: 20120216
  Transmission Date: 20120608
  Serious: Yes (Other)
  Sender: FDA-Public Use
  Company Number: FR-PFIZER INC-2011289481

PATIENT
  Age: 69 Year
  Sex: Male
  Weight: 91 kg

DRUGS (5)
  1. PHYSIOTENS [Concomitant]
     Indication: HYPERTENSION
     Dosage: 0.4 MG, 1X/DAY
     Route: 048
  2. CRESTOR [Concomitant]
     Indication: HYPERCHOLESTEROLAEMIA
     Dosage: 10 MG, 1X/DAY
     Route: 048
     Dates: start: 20060101
  3. TARKA - SLOW RELEASE [Concomitant]
     Indication: HYPERTENSION
     Dosage: 180MG/2MG, 1X/DAY
     Route: 048
  4. AMLODIPINE BESYLATE [Concomitant]
     Indication: HYPERTENSION
     Dosage: 5 MG, 1X/DAY
     Route: 048
  5. SOMAVERT [Suspect]
     Indication: ACROMEGALY
     Dosage: 20 MG, 1X/DAY
     Route: 058
     Dates: start: 20050401

REACTIONS (1)
  - THROMBOCYTOSIS [None]
